FAERS Safety Report 5499347-X (Version None)
Quarter: 2007Q4

REPORT INFORMATION
  Report Type: 
  Country: None (occurrence: None)
  Receive Date: 20071026
  Receipt Date: 20071017
  Transmission Date: 20080405
  Serious: Yes (Other)
  Sender: FDA-Public Use
  Company Number: US-ELI_LILLY_AND_COMPANY-US200710004430

PATIENT
  Age: 55 Year
  Sex: Male

DRUGS (4)
  1. ALIMTA [Suspect]
     Dosage: 500 MG, UNK
     Dates: start: 20070919, end: 20071017
  2. ALIMTA [Suspect]
     Dosage: 900 MG, UNK
     Dates: end: 20071017
  3. FOLIC ACID [Concomitant]
     Dates: start: 20070901
  4. VITAMIN B-12 [Concomitant]
     Dates: start: 20070901

REACTIONS (3)
  - HYPOTENSION [None]
  - PLATELET COUNT DECREASED [None]
  - WHITE BLOOD CELL COUNT DECREASED [None]
